FAERS Safety Report 4649288-2 (Version None)
Quarter: 2005Q2

REPORT INFORMATION
  Report Type: 
  Country: None (occurrence: None)
  Receive Date: 20050429
  Receipt Date: 20050131
  Transmission Date: 20051028
  Serious: Yes (Hospitalization)
  Sender: FDA-Public Use
  Company Number: US-MERCK-0502USA00114

PATIENT
  Age: 63 Year
  Sex: Male
  Weight: 111 kg

DRUGS (7)
  1. VIOXX [Suspect]
     Indication: ARTHRALGIA
     Route: 048
     Dates: start: 19991221, end: 20030104
  2. VIOXX [Suspect]
     Indication: PAIN IN EXTREMITY
     Route: 048
     Dates: start: 19991221, end: 20030104
  3. TYLENOL [Concomitant]
     Indication: SLEEP DISORDER
     Route: 048
  4. ASPIRIN [Concomitant]
     Indication: SLEEP DISORDER
     Route: 048
  5. IBUPROFEN [Concomitant]
     Route: 048
  6. SAW PALMETTO STANDARDIZED EXTRACT [Concomitant]
     Route: 065
  7. VIAGRA [Concomitant]
     Route: 065

REACTIONS (13)
  - CHEST PAIN [None]
  - CORONARY ARTERY DISEASE [None]
  - DYSPEPSIA [None]
  - EMOTIONAL DISTRESS [None]
  - HIGH DENSITY LIPOPROTEIN DECREASED [None]
  - HYPERLIPIDAEMIA [None]
  - HYPERTENSION [None]
  - MYOCARDIAL INFARCTION [None]
  - MYOCARDIAL ISCHAEMIA [None]
  - OEDEMA PERIPHERAL [None]
  - PROSTATITIS [None]
  - UPPER RESPIRATORY TRACT INFECTION [None]
  - VENTRICULAR TACHYCARDIA [None]
